FAERS Safety Report 4816078-7 (Version None)
Quarter: 2005Q4

REPORT INFORMATION
  Report Type: 
  Country: None (occurrence: None)
  Receive Date: 20051026
  Receipt Date: 20051011
  Transmission Date: 20060501
  Serious: Yes (Death)
  Sender: FDA-Public Use
  Company Number: 1913

PATIENT
  Age: 42 Year
  Sex: Female
  Weight: 81.6475 kg

DRUGS (6)
  1. AVINZA [Suspect]
     Indication: PAIN MANAGEMENT
     Dosage: 60 MG DAILY PO
     Route: 048
     Dates: start: 20050901, end: 20051001
  2. AVINZA [Suspect]
     Indication: PAIN MANAGEMENT
     Dosage: 120 MG DAILY PO
     Route: 048
     Dates: start: 20051001, end: 20051005
  3. CLONAZEPAM [Concomitant]
  4. ESCITALOPRAM OXALATE [Concomitant]
  5. OXYBUTYNIN [Concomitant]
  6. VENLAFAXINE HCL [Concomitant]

REACTIONS (4)
  - DRUG INTERACTION [None]
  - OVERDOSE [None]
  - SOMNOLENCE [None]
  - TREATMENT NONCOMPLIANCE [None]
